FAERS Safety Report 25060679 (Version 1)
Quarter: 2025Q1

REPORT INFORMATION
  Report Type: Report from Study
  Country: DE (occurrence: DE)
  Receive Date: 20250310
  Receipt Date: 20250310
  Transmission Date: 20250408
  Serious: Yes (Death)
  Sender: BAYER HEALTHCARE PHARMACEUTICALS INC.
  Company Number: DE-BAYER-2025A032450

PATIENT
  Age: 74 Year
  Sex: Male

DRUGS (1)
  1. BETAFERON [Suspect]
     Active Substance: INTERFERON BETA-1B
     Indication: Multiple sclerosis
     Dosage: 250 ?G, QOD
     Route: 058
     Dates: start: 20030101

REACTIONS (1)
  - Death [Fatal]

NARRATIVE: CASE EVENT DATE: 20241101
